FAERS Safety Report 10039111 (Version 2)
Quarter: 2014Q2

REPORT INFORMATION
  Report Type: Spontaneous
  Country: IT (occurrence: IT)
  Receive Date: 20140326
  Receipt Date: 20140403
  Transmission Date: 20141212
  Serious: Yes (Other)
  Sender: FDA-Public Use
  Company Number: PHHY2014IT034606

PATIENT
  Age: 39 Year
  Sex: Female

DRUGS (1)
  1. TEGRETOL [Suspect]
     Indication: OVERDOSE
     Dosage: 4000 MG, TOTAL
     Dates: start: 20140209, end: 20140209

REACTIONS (3)
  - Vertigo [Recovered/Resolved]
  - Nausea [Recovered/Resolved]
  - Somnolence [Recovered/Resolved]
